FAERS Safety Report 9818577 (Version 1)
Quarter: 2013Q4

REPORT INFORMATION
  Report Type: Spontaneous
  Country: US (occurrence: None)
  Receive Date: 20131223
  Receipt Date: 20131223
  Transmission Date: 20140711
  Serious: Yes (Other)
  Sender: FDA-Public Use
  Company Number: 221862

PATIENT
  Age: 62 Year
  Sex: Male

DRUGS (1)
  1. PICATO GEL [Suspect]
     Route: 061
     Dates: start: 20130505, end: 20130511

REACTIONS (3)
  - Application site exfoliation [None]
  - Skin exfoliation [None]
  - Drug administration error [None]
